FAERS Safety Report 10922572 (Version 1)
Quarter: 2015Q1

REPORT INFORMATION
  Report Type: Spontaneous
  Country: US (occurrence: None)
  Receive Date: 20150313
  Receipt Date: 20150313
  Transmission Date: 20150721
  Serious: Yes (Death)
  Sender: FDA-Public Use
  Company Number: CIO15015223

PATIENT
  Age: 21 Year
  Sex: Female

DRUGS (13)
  1. ORPHENADRINE (ORPHENADRINE) (ORPHENADRINE) [Concomitant]
     Active Substance: ORPHENADRINE
  2. DOXYLAMINE SUCCINATE (DOXYLAMINE SUCCINATE) [Concomitant]
  3. MEPROBAMATE (MEPROBAMATE) [Concomitant]
     Active Substance: MEPROBAMATE
  4. NICOTINE (NICOTINE) [Concomitant]
     Active Substance: NICOTINE
  5. SUMATRIPTAN (SUMATRIPTAN) [Suspect]
     Active Substance: SUMATRIPTAN
     Route: 048
  6. HYDROMORPHONE (HYDROMORPHONE) [Concomitant]
     Active Substance: HYDROMORPHONE
  7. CARISOPRODOL (CARISOPRODOL) [Concomitant]
     Active Substance: CARISOPRODOL
  8. DEXTROMETHORPHAN [Suspect]
     Active Substance: DEXTROMETHORPHAN
     Route: 048
  9. TRIMETHOPRIM (TRIMETHOPRIM) [Concomitant]
     Active Substance: TRIMETHOPRIM
  10. ONDANESTRON (ONSANETRONE) [Concomitant]
  11. HYDROXYZINE (HYDROXYZINE) [Suspect]
     Active Substance: HYDROXYZINE HYDROCHLORIDE
     Route: 048
  12. FLUOXETINE (FLUOXETINE) [Concomitant]
     Active Substance: FLUOXETINE HYDROCHLORIDE
  13. GABAPENTIN (GABAPENTIN) [Concomitant]
     Active Substance: GABAPENTIN

REACTIONS (7)
  - Pulmonary congestion [None]
  - Unresponsive to stimuli [None]
  - Drug level increased [None]
  - Aspiration [None]
  - Pulmonary oedema [None]
  - Drug screen positive [None]
  - Toxicity to various agents [None]
